FAERS Safety Report 6999838-6 (Version None)
Quarter: 2010Q3

REPORT INFORMATION
  Report Type: 
  Country: None (occurrence: None)
  Receive Date: 20100920
  Receipt Date: 20100217
  Transmission Date: 20110219
  Serious: Yes (Hospitalization)
  Sender: FDA-Public Use
  Company Number: US-ASTRAZENECA-2008UW27625

PATIENT
  Age: 18986 Day
  Sex: Female
  Weight: 54.4 kg

DRUGS (17)
  1. SEROQUEL [Suspect]
     Indication: DEPRESSION
     Dosage: 100 TO 400 MG
     Route: 048
     Dates: start: 20040524
  2. SEROQUEL [Suspect]
     Indication: INSOMNIA
     Dosage: 100 TO 400 MG
     Route: 048
     Dates: start: 20040524
  3. SEROQUEL [Suspect]
     Dosage: 25 MG, 200MG, 400MG
     Route: 048
  4. SEROQUEL [Suspect]
     Dosage: 25 MG, 200MG, 400MG
     Route: 048
  5. SEROQUEL [Suspect]
     Route: 048
     Dates: start: 20051104, end: 20081201
  6. SEROQUEL [Suspect]
     Route: 048
     Dates: start: 20051104, end: 20081201
  7. HALDOL [Concomitant]
  8. SEZOPE [Concomitant]
  9. PAXIL [Concomitant]
  10. ZOLOFT [Concomitant]
  11. PROZAC [Concomitant]
     Dates: start: 20080925
  12. CLONOPIN [Concomitant]
  13. XANAX [Concomitant]
  14. ATTIVARV [Concomitant]
  15. DILANTIN [Concomitant]
     Dates: start: 20080928
  16. RESTORIL [Concomitant]
     Dates: start: 20080928
  17. LIBRIUM [Concomitant]
     Route: 048
     Dates: start: 20080928

REACTIONS (2)
  - CONVULSION [None]
  - PANCREATITIS [None]
